FAERS Safety Report 8573771-0 (Version None)
Quarter: 2012Q3

REPORT INFORMATION
  Report Type: 
  Country: None (occurrence: None)
  Receive Date: 20120806
  Receipt Date: 20120730
  Transmission Date: 20120928
  Serious: Yes (Other)
  Sender: FDA-Public Use
  Company Number: GB-GLAXOSMITHKLINE-B0818914A

PATIENT
  Age: 33 Year
  Sex: Female
  Weight: 60 kg

DRUGS (2)
  1. CITALOPRAM HYDROBROMIDE [Concomitant]
     Indication: DEPRESSED MOOD
     Route: 048
     Dates: start: 20090213, end: 20100701
  2. LAMOTRIGINE [Suspect]
     Route: 048

REACTIONS (6)
  - TENDERNESS [None]
  - DEFORMITY [None]
  - ANGIOEDEMA [None]
  - STRESS [None]
  - CONDITION AGGRAVATED [None]
  - URTICARIA [None]
